FAERS Safety Report 9206321 (Version 1)
Quarter: 2013Q2

REPORT INFORMATION
  Report Type: Spontaneous
  Country: JP (occurrence: None)
  Receive Date: 20130401
  Receipt Date: 20130401
  Transmission Date: 20140414
  Serious: Yes (Other)
  Sender: FDA-Public Use
  Company Number: SYM-2013-02149

PATIENT
  Sex: 0

DRUGS (2)
  1. FLUOROURACIL [Suspect]
     Indication: OESOPHAGEAL CARCINOMA
     Dosage: 800MG/M2, INTRAVENOUS DRIP?
     Route: 042
  2. CISPLATIN (CISPLATIN) (CISPLATIN) [Suspect]
     Indication: OESOPHAGEAL CARCINOMA
     Dosage: 80 MG/M2, EVERY THREE WEEKS, INTRAVENOUS DRIP
     Route: 042

REACTIONS (2)
  - Neutropenia [None]
  - Toxicity to various agents [None]
